FAERS Safety Report 17372787 (Version 1)
Quarter: 2020Q1

REPORT INFORMATION
  Report Type: Spontaneous
  Country: US (occurrence: US)
  Receive Date: 20200205
  Receipt Date: 20200205
  Transmission Date: 20200409
  Serious: Yes (Death)
  Sender: FDA-Public Use
  Company Number: US-ALVOGEN-2020-ALVOGEN-107523

PATIENT
  Age: 45 Year
  Sex: Male

DRUGS (3)
  1. ISOPROPANOL [Suspect]
     Active Substance: ISOPROPANOLAMINE
     Indication: DRUG ABUSE
     Route: 065
  2. NAPROXEN. [Suspect]
     Active Substance: NAPROXEN
     Indication: DRUG ABUSE
     Route: 065
  3. METAMFETAMINE HYDROCHLORIDE [Suspect]
     Active Substance: METHAMPHETAMINE HYDROCHLORIDE
     Indication: DRUG ABUSE
     Route: 065

REACTIONS (1)
  - Drug abuse [Fatal]
